FAERS Safety Report 10155057 (Version 2)
Quarter: 2014Q2

REPORT INFORMATION
  Report Type: Spontaneous
  Country: BR (occurrence: BR)
  Receive Date: 20140506
  Receipt Date: 20140602
  Transmission Date: 20141212
  Serious: Yes (Hospitalization, Other)
  Sender: FDA-Public Use
  Company Number: PHHY2014BR053197

PATIENT
  Age: 61 Year
  Sex: Female
  Weight: 76 kg

DRUGS (3)
  1. DIOVAN [Suspect]
     Indication: HYPERTENSION
     Dosage: 1 DF, DAILY (MORNINGS)
     Route: 048
  2. DIOVAN [Suspect]
     Dosage: 1 DF, DAILY (MORNINGS)
     Route: 048
  3. ATENOLOL [Suspect]
     Indication: HYPERTENSION
     Dosage: 1 DF, DAILY (MORNINGS)
     Route: 048

REACTIONS (12)
  - Cholelithiasis [Recovered/Resolved]
  - Vomiting [Recovered/Resolved]
  - Pyrexia [Recovered/Resolved]
  - Hypertension [Recovering/Resolving]
  - Eye pain [Recovering/Resolving]
  - Headache [Recovering/Resolving]
  - Abdominal distension [Recovered/Resolved]
  - Flatulence [Recovered/Resolved]
  - Blood pressure fluctuation [Unknown]
  - Diarrhoea [Recovered/Resolved]
  - Insomnia [Not Recovered/Not Resolved]
  - Expired product administered [Unknown]
